FAERS Safety Report 7366445-5 (Version None)
Quarter: 2011Q1

REPORT INFORMATION
  Report Type: 
  Country: None (occurrence: None)
  Receive Date: 20110322
  Receipt Date: 20110308
  Transmission Date: 20110831
  Serious: Yes (Hospitalization)
  Sender: FDA-Public Use
  Company Number: US-JNJFOC-20070505431

PATIENT
  Sex: Male
  Weight: 70 kg

DRUGS (3)
  1. INFLIXIMAB [Suspect]
     Indication: CROHN'S DISEASE
     Dosage: TOTAL 3 DOSES
     Route: 042
  2. MERCAPTOPURINE [Concomitant]
  3. METRONIDAZOLE [Concomitant]

REACTIONS (1)
  - COLOSTOMY CLOSURE [None]
